FAERS Safety Report 7493703-6 (Version None)
Quarter: 2011Q2

REPORT INFORMATION
  Report Type: 
  Country: None (occurrence: None)
  Receive Date: 20110520
  Receipt Date: 20110516
  Transmission Date: 20111010
  Serious: Yes (Life-Threatening)
  Sender: FDA-Public Use
  Company Number: JP-PFIZER INC-2011075578

PATIENT
  Age: 81 Year
  Sex: Male
  Weight: 53 kg

DRUGS (2)
  1. ZYVOX [Suspect]
     Indication: PNEUMONIA STAPHYLOCOCCAL
     Dosage: 600 MG, 2X/DAY
     Route: 041
     Dates: start: 20110121, end: 20110127
  2. FLUMARIN [Suspect]
     Indication: PROPHYLAXIS
     Dosage: 1 G, 2X/DAY
     Route: 041
     Dates: start: 20110112, end: 20110116

REACTIONS (1)
  - HYPONATRAEMIA [None]
